FAERS Safety Report 10620360 (Version 7)
Quarter: 2015Q1

REPORT INFORMATION
  Report Type: Spontaneous
  Country: FR (occurrence: FR)
  Receive Date: 20141202
  Receipt Date: 20150225
  Transmission Date: 20150720
  Serious: Yes (Death, Hospitalization, Other)
  Sender: FDA-Public Use
  Company Number: FR-PFIZER INC-2014324229

PATIENT
  Age: 55 Year
  Sex: Female

DRUGS (19)
  1. OFLOXACIN MYLAN [Suspect]
     Active Substance: OFLOXACIN
     Indication: INFECTION
     Dosage: UNK
     Route: 042
     Dates: start: 20141005, end: 20141121
  2. KARDEGIC [Concomitant]
     Active Substance: ASPIRIN LYSINE
     Dosage: 75 MG, UNK
  3. TIENAM [Concomitant]
     Active Substance: CILASTATIN SODIUM\IMIPENEM
     Dosage: UNK
     Dates: end: 20141024
  4. FUROSEMIDE. [Suspect]
     Active Substance: FUROSEMIDE
     Indication: HYPERNATRAEMIA
     Dosage: UNK
     Route: 042
     Dates: start: 20141005, end: 20141010
  5. FUROSEMIDE. [Suspect]
     Active Substance: FUROSEMIDE
     Dosage: UNK
     Route: 042
     Dates: start: 20141024, end: 20141112
  6. MICARDIS [Concomitant]
     Active Substance: TELMISARTAN
     Dosage: 40 MG, UNK
  7. CALCIPARINE [Suspect]
     Active Substance: HEPARIN CALCIUM
     Dosage: 12,500
     Route: 058
     Dates: start: 20140929
  8. CETIRIZINE [Concomitant]
     Active Substance: CETIRIZINE HYDROCHLORIDE
     Dosage: 10 MG, UNK
  9. HUMALOG [Concomitant]
     Active Substance: INSULIN LISPRO
     Dosage: UNK
  10. DAFALGAN [Concomitant]
     Active Substance: ACETAMINOPHEN
     Dosage: 1 G, UNK
  11. SECTRAL [Concomitant]
     Active Substance: ACEBUTOLOL HYDROCHLORIDE
     Dosage: 200 MG, UNK
  12. TAHOR [Suspect]
     Active Substance: ATORVASTATIN CALCIUM
     Dosage: 10 MG, DAILY
     Route: 048
     Dates: start: 20140929, end: 20141109
  13. FLUCONAZOLE KABI [Suspect]
     Active Substance: FLUCONAZOLE
     Indication: FUNGAL INFECTION
     Dosage: 100 MG, DAILY
     Route: 042
     Dates: start: 20141110, end: 20141119
  14. ALPRESS LP [Concomitant]
     Dosage: 5 MG, UNK
  15. CLOXACILLIN PANPHARMA [Suspect]
     Active Substance: CLOXACILLIN
     Indication: INFECTION
     Dosage: UNK
     Route: 042
     Dates: start: 20141005, end: 20141121
  16. EUPANTOL [Suspect]
     Active Substance: PANTOPRAZOLE SODIUM
     Indication: OESOPHAGITIS
     Dosage: 40 MG, DAILY
     Route: 042
     Dates: start: 20141110, end: 20141119
  17. LEVEMIR [Concomitant]
     Active Substance: INSULIN DETEMIR
     Dosage: UNK
  18. ATARAX [Concomitant]
     Active Substance: HYDROXYZINE\HYDROXYZINE HYDROCHLORIDE
     Dosage: 25 MG, UNK
  19. LOXEN LP [Concomitant]
     Active Substance: NICARDIPINE
     Dosage: 50 MG, UNK

REACTIONS (6)
  - Oedema peripheral [Unknown]
  - Death [Fatal]
  - Thrombocytopenia [Recovering/Resolving]
  - Renal impairment [Unknown]
  - Hypernatraemia [Unknown]
  - Pancytopenia [Recovering/Resolving]

NARRATIVE: CASE EVENT DATE: 20141117
